FAERS Safety Report 12550741 (Version 5)
Quarter: 2017Q1

REPORT INFORMATION
  Report Type: Report from Study
  Country: JP (occurrence: JP)
  Receive Date: 20160712
  Receipt Date: 20170308
  Transmission Date: 20170428
  Serious: Yes (Death, Other)
  Sender: FDA-Public Use
  Company Number: JP-BRISTOL-MYERS SQUIBB COMPANY-BMS-2016-056285

PATIENT
  Age: 44 Year
  Sex: Male
  Weight: 61 kg

DRUGS (13)
  1. BIOFERMIN                          /01617201/ [Concomitant]
     Active Substance: BACILLUS SUBTILIS\LACTOBACILLUS ACIDOPHILUS\STREPTOCOCCUS FAECAIS
     Indication: DIARRHOEA
     Dosage: 3 TAB, QD
     Route: 065
     Dates: start: 20150911, end: 20150918
  2. ZOFRAN [Concomitant]
     Active Substance: ONDANSETRON HYDROCHLORIDE
     Indication: PRODUCT USED FOR UNKNOWN INDICATION
     Route: 065
  3. LOXOPROFEN [Concomitant]
     Active Substance: LOXOPROFEN
     Indication: PAIN
     Dosage: 60 MG, UNK
     Route: 065
     Dates: start: 20150915, end: 20150926
  4. OXINORM                            /00045603/ [Concomitant]
     Active Substance: OXYCODONE HYDROCHLORIDE
     Indication: PAIN
     Dosage: UNK
     Route: 065
     Dates: start: 20150917, end: 20151025
  5. IPILIMUMAB [Suspect]
     Active Substance: IPILIMUMAB
     Indication: MALIGNANT MELANOMA
     Dosage: 3 MG/KG, UNK
     Route: 065
     Dates: start: 20150911
  6. ZYPREXA [Concomitant]
     Active Substance: OLANZAPINE
     Indication: NAUSEA
     Dosage: 2.5 MG, UNK
     Route: 065
     Dates: start: 20150914, end: 20151025
  7. NEXIUM [Concomitant]
     Active Substance: ESOMEPRAZOLE MAGNESIUM
     Indication: GASTROINTESTINAL DISORDER
     Dosage: 20 MG, QD
     Route: 065
     Dates: start: 20150909, end: 20150914
  8. OXYCODONE [Concomitant]
     Active Substance: OXYCODONE
     Indication: ABDOMINAL PAIN UPPER
     Dosage: 20 MG, QD
     Route: 065
     Dates: start: 20150909, end: 20150916
  9. IPILIMUMAB [Suspect]
     Active Substance: IPILIMUMAB
     Indication: PRODUCT USED FOR UNKNOWN INDICATION
     Dosage: 3 MG/KG, UNK
     Route: 065
     Dates: start: 20151002
  10. MAGMITT [Concomitant]
     Active Substance: MAGNESIUM OXIDE
     Indication: CONSTIPATION
     Dosage: 330 MG, TID
     Route: 065
     Dates: start: 20150909, end: 20150916
  11. FENTOS [Concomitant]
     Active Substance: FENTANYL
     Indication: PAIN
     Dosage: UNK
     Route: 065
     Dates: start: 20150914, end: 20151025
  12. TEPRENONE [Concomitant]
     Active Substance: TEPRENONE
     Indication: PAIN
     Dosage: 2.5 MG, UNK
     Route: 065
     Dates: start: 20150917, end: 20150926
  13. ZYPREXA [Concomitant]
     Active Substance: OLANZAPINE
     Indication: VOMITING
     Dosage: 5 MG, QD
     Route: 065
     Dates: start: 20150909, end: 20151025

REACTIONS (3)
  - Malignant neoplasm progression [Fatal]
  - Aspartate aminotransferase increased [Recovered/Resolved]
  - Diarrhoea [Recovering/Resolving]

NARRATIVE: CASE EVENT DATE: 20150921
